FAERS Safety Report 17713040 (Version 3)
Quarter: 2020Q2

REPORT INFORMATION
  Report Type: Spontaneous
  Country: SI (occurrence: SI)
  Receive Date: 20200427
  Receipt Date: 20200616
  Transmission Date: 20200714
  Serious: Yes (Other)
  Sender: FDA-Public Use
  Company Number: SI-AMGEN-SVNSP2020065183

PATIENT
  Age: 92 Year
  Sex: Female

DRUGS (7)
  1. PROLIA [Suspect]
     Active Substance: DENOSUMAB
     Indication: OSTEOPOROSIS POSTMENOPAUSAL
     Dosage: UNK UNK, Q6MO
     Route: 058
     Dates: start: 20170901
  2. CONCOR COR [Concomitant]
     Active Substance: BISOPROLOL FUMARATE
     Dosage: 2.5 1X1
  3. LEKADOL [Concomitant]
     Active Substance: ACETAMINOPHEN
     Dosage: 500 UNK, AS NECESSARY
  4. LORISTA [Concomitant]
     Active Substance: LOSARTAN POTASSIUM
     Dosage: 50 UNK 1X1
  5. ANALGIN [METAMIZOLE SODIUM] [Concomitant]
     Dosage: UNK UNK, AS NECESSARY
  6. KVENTIAX [Concomitant]
     Active Substance: QUETIAPINE FUMARATE
     Dosage: 25 GRAM
  7. LACIPIL [Concomitant]
     Active Substance: LACIDIPINE
     Dosage: 4 UNK 1X1

REACTIONS (2)
  - Fall [Unknown]
  - Pelvic fracture [Recovered/Resolved]

NARRATIVE: CASE EVENT DATE: 20200207
